FAERS Safety Report 17241469 (Version 1)
Quarter: 2020Q1

REPORT INFORMATION
  Report Type: Spontaneous
  Country: BE (occurrence: BE)
  Receive Date: 20200107
  Receipt Date: 20200107
  Transmission Date: 20200409
  Serious: Yes (Hospitalization)
  Sender: FDA-Public Use
  Company Number: BE-MYLANLABS-2020M1001615

PATIENT
  Age: 27 Year
  Sex: Male

DRUGS (10)
  1. DIAZEPAM. [Concomitant]
     Active Substance: DIAZEPAM
     Indication: STATUS EPILEPTICUS
     Dosage: OVER 24H
     Route: 042
  2. PHENYTOIN. [Suspect]
     Active Substance: PHENYTOIN
     Indication: STATUS EPILEPTICUS
     Dosage: LOADING DOSE
     Route: 042
  3. VALPROIC ACID. [Suspect]
     Active Substance: VALPROIC ACID
     Indication: STATUS EPILEPTICUS
     Dosage: OVER 24H
     Route: 042
  4. MIDAZOLAM HYDROCHLORIDE. [Concomitant]
     Active Substance: MIDAZOLAM HYDROCHLORIDE
     Indication: STATUS EPILEPTICUS
     Dosage: OVER 24H
     Route: 065
  5. PROPOFOL. [Concomitant]
     Active Substance: PROPOFOL
     Dosage: 3 MG/KG/H
     Route: 042
  6. LEVETIRACETAM. [Suspect]
     Active Substance: LEVETIRACETAM
     Indication: STATUS EPILEPTICUS
     Dosage: 1 GRAM, BID
     Route: 042
  7. PROPOFOL. [Concomitant]
     Active Substance: PROPOFOL
     Indication: STATUS EPILEPTICUS
     Dosage: 2 MG/KG/H
     Route: 042
  8. PHENYTOIN. [Suspect]
     Active Substance: PHENYTOIN
     Dosage: MAINTENANCE DOSE
     Route: 042
  9. LEVETIRACETAM. [Suspect]
     Active Substance: LEVETIRACETAM
     Dosage: FOUR TIMES DAILY, THE DOSE WAS REDUCED TO 1G TWICE DAILY
     Route: 042
  10. LEVETIRACETAM. [Suspect]
     Active Substance: LEVETIRACETAM
     Dosage: THREE TIMES DAILY
     Route: 042

REACTIONS (1)
  - Rhabdomyolysis [Recovered/Resolved]
